FAERS Safety Report 13986518 (Version 1)
Quarter: 2017Q3

REPORT INFORMATION
  Report Type: Spontaneous
  Country: US (occurrence: US)
  Receive Date: 20170919
  Receipt Date: 20170919
  Transmission Date: 20171128
  Serious: No
  Sender: FDA-Public Use
  Company Number: US-ASTRAZENECA-2017SE93938

PATIENT
  Age: 25619 Day
  Sex: Female
  Weight: 60.8 kg

DRUGS (4)
  1. ALBUTEROL INHALER [Concomitant]
     Active Substance: ALBUTEROL
     Indication: INHALATION THERAPY
     Dosage: AS REQUIRED
  2. SYMBICORT [Suspect]
     Active Substance: BUDESONIDE\FORMOTEROL FUMARATE DIHYDRATE
     Indication: DYSPNOEA
     Dosage: 4.5 UG, TWO TIMES A DAY
     Route: 055
  3. TUDORZA PRESSAIR [Suspect]
     Active Substance: ACLIDINIUM BROMIDE
     Indication: DYSPNOEA
     Dosage: 400UG, 1 PUFF TWO TIMES A DAY
     Route: 055
     Dates: start: 20170906
  4. EFFEXOR [Concomitant]
     Active Substance: VENLAFAXINE HYDROCHLORIDE
     Indication: ANXIETY
     Route: 048

REACTIONS (5)
  - Micturition urgency [Unknown]
  - Off label use [Unknown]
  - Product use in unapproved indication [Unknown]
  - Bladder prolapse [Unknown]
  - Impaired healing [Unknown]

NARRATIVE: CASE EVENT DATE: 20170726
